FAERS Safety Report 6821602-9 (Version None)
Quarter: 2010Q3

REPORT INFORMATION
  Report Type: 
  Country: None (occurrence: None)
  Receive Date: 20100707
  Receipt Date: 20090524
  Transmission Date: 20110219
  Serious: No
  Sender: FDA-Public Use
  Company Number: US-PFIZER INC-2009196145

PATIENT
  Sex: Female
  Weight: 54.422 kg

DRUGS (2)
  1. ZOLOFT [Suspect]
     Indication: DEPRESSION
     Dosage: 50 MG, 1X/DAY
     Dates: start: 20090325
  2. TRAZODONE [Interacting]
     Indication: SLEEP DISORDER

REACTIONS (5)
  - DRUG INTERACTION [None]
  - DRUG SCREEN FALSE POSITIVE [None]
  - RESTLESS LEGS SYNDROME [None]
  - RESTLESSNESS [None]
  - SLEEP DISORDER [None]
